FAERS Safety Report 19184438 (Version 3)
Quarter: 2021Q3

REPORT INFORMATION
  Report Type: Report from Study
  Country: US (occurrence: US)
  Receive Date: 20210427
  Receipt Date: 20210918
  Transmission Date: 20211014
  Serious: Yes (Other)
  Sender: FDA-Public Use
  Company Number: US-TAKEDA-US201925717

PATIENT
  Sex: Female

DRUGS (2)
  1. VITAMIN B12 [Concomitant]
     Active Substance: CYANOCOBALAMIN
     Indication: PRODUCT USED FOR UNKNOWN INDICATION
     Route: 065
  2. CUVITRU [Suspect]
     Active Substance: HUMAN IMMUNOGLOBULIN G
     Indication: IMMUNODEFICIENCY COMMON VARIABLE
     Dosage: UNK
     Route: 065

REACTIONS (22)
  - Pseudomonas infection [Unknown]
  - Alopecia [Unknown]
  - Plantar fasciitis [Unknown]
  - Transient ischaemic attack [Unknown]
  - Lung disorder [Unknown]
  - Fascia release [Unknown]
  - Abscess oral [Unknown]
  - Asthma [Unknown]
  - Autoimmune thyroiditis [Unknown]
  - Normal pressure hydrocephalus [Unknown]
  - Pneumonia bacterial [Unknown]
  - Weight decreased [Unknown]
  - Gastrooesophageal reflux disease [Unknown]
  - Tooth disorder [Unknown]
  - Neoplasm malignant [Unknown]
  - Lung hernia [Unknown]
  - Obstructive airways disorder [Unknown]
  - Osteoarthritis [Unknown]
  - Chronic obstructive pulmonary disease [Unknown]
  - Emphysema [Unknown]
  - Pneumonitis [Unknown]
  - Thyroid disorder [Unknown]
